FAERS Safety Report 4455695-3 (Version None)
Quarter: 2004Q3

REPORT INFORMATION
  Report Type: 
  Country: None (occurrence: None)
  Receive Date: 20040920
  Receipt Date: 20040913
  Transmission Date: 20050211
  Serious: Yes (Death, Hospitalization, Other)
  Sender: FDA-Public Use
  Company Number: US-JNJFOC-20040903494

PATIENT
  Age: 26 Year
  Sex: Female

DRUGS (2)
  1. ACETAMINOPHEN [Suspect]
     Indication: SUICIDE ATTEMPT
     Dosage: ORAL
     Route: 048
  2. CARISOPRODOL [Suspect]
     Indication: SUICIDE ATTEMPT
     Dosage: ORAL
     Route: 048

REACTIONS (13)
  - ABDOMINAL PAIN [None]
  - ALANINE AMINOTRANSFERASE INCREASED [None]
  - ASPARTATE AMINOTRANSFERASE INCREASED [None]
  - BLOOD BILIRUBIN INCREASED [None]
  - BRAIN OEDEMA [None]
  - COMA [None]
  - CONFUSIONAL STATE [None]
  - DRUG INEFFECTIVE [None]
  - HYPOTENSION [None]
  - INTERNATIONAL NORMALISED RATIO INCREASED [None]
  - OLIGURIA [None]
  - SUICIDAL IDEATION [None]
  - TRANSAMINASES INCREASED [None]
